FAERS Safety Report 18343075 (Version 1)
Quarter: 2020Q4

REPORT INFORMATION
  Report Type: Spontaneous
  Country: US (occurrence: US)
  Receive Date: 20201002
  Receipt Date: 20201002
  Transmission Date: 20210113
  Serious: Yes (Life-Threatening, Hospitalization)
  Sender: FDA-Public Use
  Company Number: None

PATIENT
  Age: 40 Year
  Sex: Female
  Weight: 74.7 kg

DRUGS (4)
  1. DEPACON [Suspect]
     Active Substance: VALPROATE SODIUM
     Indication: MIGRAINE
     Dosage: ?          OTHER FREQUENCY:ONE TIME DOSE;?
     Route: 041
  2. TORADOL 30 MG IV [Concomitant]
     Dates: start: 20201002, end: 20201002
  3. PHENERGAN 25 MG IM [Concomitant]
     Dates: start: 20201002, end: 20201002
  4. SOLUMEDROL 125 MG IV [Concomitant]
     Dates: start: 20201002, end: 20201002

REACTIONS (6)
  - Pharyngeal swelling [None]
  - Facial paralysis [None]
  - Swelling face [None]
  - Dysphagia [None]
  - Urticaria [None]
  - Confusional state [None]

NARRATIVE: CASE EVENT DATE: 20201002
